FAERS Safety Report 6551140-2 (Version None)
Quarter: 2010Q1

REPORT INFORMATION
  Report Type: 
  Country: None (occurrence: None)
  Receive Date: 20100121
  Receipt Date: 20100108
  Transmission Date: 20100710
  Serious: Yes (Death)
  Sender: FDA-Public Use
  Company Number: 007664

PATIENT
  Age: 84 Year
  Sex: Female

DRUGS (7)
  1. PLETAL [Suspect]
     Indication: ARTERIOSCLEROSIS OBLITERANS
     Dosage: 100 MG, BID, ORAL
     Route: 048
     Dates: start: 20080815, end: 20090222
  2. CANDESARTAN CILEXETIL [Concomitant]
  3. BASEN OD (VOGLIBOSE) [Concomitant]
  4. METFORMIN HYDROCHLORIDE [Concomitant]
  5. GLYBURIDE [Concomitant]
  6. DISOPYRAMIDE [Concomitant]
  7. ASPIRIN [Concomitant]

REACTIONS (4)
  - BLOOD GLUCOSE INCREASED [None]
  - CARDIO-RESPIRATORY ARREST [None]
  - CEREBRAL INFARCTION [None]
  - GLYCOSYLATED HAEMOGLOBIN INCREASED [None]
